FAERS Safety Report 7653766-1 (Version None)
Quarter: 2011Q3

REPORT INFORMATION
  Report Type: 
  Country: None (occurrence: None)
  Receive Date: 20110803
  Receipt Date: 20110725
  Transmission Date: 20111222
  Serious: Yes (Life-Threatening)
  Sender: FDA-Public Use
  Company Number: JP-GLAXOSMITHKLINE-B0701301A

PATIENT
  Sex: Male
  Weight: 65 kg

DRUGS (17)
  1. SOLU-CORTEF [Concomitant]
     Indication: STEM CELL TRANSPLANT
     Dosage: 100MG PER DAY
     Route: 042
     Dates: start: 20101126, end: 20101126
  2. PRIMPERAN TAB [Concomitant]
     Dosage: 10MG PER DAY
     Dates: start: 20101125, end: 20101127
  3. TARGOCID [Concomitant]
     Route: 042
     Dates: start: 20101214, end: 20101216
  4. CEFAZOLIN SODIUM [Concomitant]
     Dosage: 3G PER DAY
     Route: 048
     Dates: start: 20100615
  5. VENOGLOBULIN [Concomitant]
     Dosage: 5G PER DAY
     Route: 042
     Dates: start: 20101209, end: 20101209
  6. ZOMETA [Concomitant]
     Dosage: 4MG PER DAY
     Route: 042
     Dates: start: 20101210, end: 20101210
  7. NEUTROGIN [Concomitant]
     Dates: start: 20101201, end: 20101206
  8. GABAPENTIN [Concomitant]
     Dosage: 600MG PER DAY
     Route: 048
     Dates: start: 20101004, end: 20101221
  9. LEVOFLOXACIN [Concomitant]
     Dosage: 500MG PER DAY
     Route: 048
     Dates: start: 20101123, end: 20101209
  10. ALKERAN [Suspect]
     Indication: STEM CELL TRANSPLANT
     Dosage: 175MG PER DAY
     Route: 042
     Dates: start: 20101123, end: 20101124
  11. VICCLOX [Concomitant]
     Dosage: 1G PER DAY
     Route: 048
     Dates: start: 20101119, end: 20101221
  12. IRRIBOW [Concomitant]
     Dosage: 5MCG PER DAY
     Route: 048
     Dates: start: 20100916
  13. FAMOTIDINE [Concomitant]
     Dosage: 40MG PER DAY
     Route: 048
     Dates: start: 20100413
  14. LOSARTAN POTASSIUM [Concomitant]
     Dosage: 50MG PER DAY
     Route: 048
     Dates: start: 20100907
  15. DORIPENEM MONOHYDRATE [Concomitant]
     Dosage: 1.5G PER DAY
     Route: 042
     Dates: start: 20101209, end: 20101217
  16. DIFLUCAN [Concomitant]
     Dosage: 200MG PER DAY
     Route: 048
     Dates: start: 20101123, end: 20101221
  17. FUROSEMIDE [Concomitant]
     Dosage: 20MG PER DAY
     Route: 042
     Dates: start: 20101123, end: 20101206

REACTIONS (1)
  - SEPSIS [None]
